FAERS Safety Report 6578847-5 (Version None)
Quarter: 2010Q1

REPORT INFORMATION
  Report Type: 
  Country: None (occurrence: None)
  Receive Date: 20100202
  Receipt Date: 20100126
  Transmission Date: 20100710
  Serious: Yes (Other)
  Sender: FDA-Public Use
  Company Number: DELA20100002

PATIENT
  Age: 34 Year
  Sex: Male

DRUGS (3)
  1. DELATESTRYL [Suspect]
     Indication: DRUG USE FOR UNKNOWN INDICATION
  2. OXYCONTIN (OXYCODONE HYDRCHLORIDE) (OXYCODONE HYDROCHLORIDE) [Concomitant]
  3. COCAINE (COCAINE) (COCAINE) [Concomitant]

REACTIONS (7)
  - DEPRESSED MOOD [None]
  - DRUG DEPENDENCE [None]
  - FATIGUE [None]
  - FEAR [None]
  - GYNAECOMASTIA [None]
  - LOSS OF LIBIDO [None]
  - TOTAL CHOLESTEROL/HDL RATIO INCREASED [None]
